FAERS Safety Report 4591335-0 (Version None)
Quarter: 2005Q1

REPORT INFORMATION
  Report Type: 
  Country: None (occurrence: None)
  Receive Date: 20050222
  Receipt Date: 20050207
  Transmission Date: 20050727
  Serious: Yes (Hospitalization)
  Sender: FDA-Public Use
  Company Number: PIR 0501020

PATIENT
  Age: 82 Year
  Sex: Male

DRUGS (1)
  1. CEFAZOLIN FOR INJECTION USP AND DEXTROSE INJECTION USP IN DUPLEX COR [Suspect]
     Indication: CARDIAC PACEMAKER INSERTION
     Dosage: 1 GRAM ONE TIME IV
     Route: 042
     Dates: start: 20050107

REACTIONS (3)
  - INFUSION SITE BURNING [None]
  - PHARMACEUTICAL PRODUCT COMPLAINT [None]
  - PHLEBOTHROMBOSIS [None]
